FAERS Safety Report 24898242 (Version 2)
Quarter: 2025Q2

REPORT INFORMATION
  Report Type: Spontaneous
  Country: FI (occurrence: FI)
  Receive Date: 20250129
  Receipt Date: 20250408
  Transmission Date: 20250717
  Serious: Yes (Other)
  Sender: NOVARTIS
  Company Number: FI-002147023-NVSC2025FI011618

PATIENT

DRUGS (1)
  1. COSENTYX [Suspect]
     Active Substance: SECUKINUMAB
     Indication: Hidradenitis
     Route: 065

REACTIONS (1)
  - Inflammatory bowel disease [Unknown]
